FAERS Safety Report 18405476 (Version 1)
Quarter: 2020Q4

REPORT INFORMATION
  Report Type: Report from Study
  Country: CN (occurrence: CN)
  Receive Date: 20201020
  Receipt Date: 20201020
  Transmission Date: 20210114
  Serious: Yes (Hospitalization, Other)
  Sender: FDA-Public Use
  Company Number: CN-CASPER PHARMA LLC-2020CAS000533

PATIENT
  Age: 28 Year
  Sex: Female
  Weight: 50 kg

DRUGS (3)
  1. NEOMYCIN, POLYMYXIN, BACITRACIN, HC [Suspect]
     Active Substance: BACITRACIN ZINC\HYDROCORTISONE\NEOMYCIN SULFATE\POLYMYXIN B SULFATE
     Indication: MYOCARDITIS
     Dosage: 100 MILLIGRAM, QD
     Route: 041
     Dates: start: 20190503, end: 20190512
  2. SUFENTANIL CITRATE. [Concomitant]
     Active Substance: SUFENTANIL CITRATE
     Indication: MYOCARDITIS
     Dosage: 300 MG I.V. PUMP PER DAY
     Route: 042
     Dates: start: 20190501, end: 20190505
  3. METHYLPREDNISOLONE SODIUM SUCCINATE. [Concomitant]
     Active Substance: METHYLPREDNISOLONE SODIUM SUCCINATE
     Indication: MYOCARDITIS
     Dosage: 80 MILLIGRAM, QD
     Route: 041
     Dates: start: 20190502, end: 20190505

REACTIONS (1)
  - Neurotoxicity [Recovered/Resolved]
